FAERS Safety Report 4580683-6 (Version None)
Quarter: 2005Q1

REPORT INFORMATION
  Report Type: 
  Country: None (occurrence: None)
  Receive Date: 20050214
  Receipt Date: 20040511
  Transmission Date: 20050727
  Serious: No
  Sender: FDA-Public Use
  Company Number: US-GLAXOSMITHKLINE-A0510422A

PATIENT
  Age: 13 Year
  Sex: Male

DRUGS (4)
  1. LAMICTAL [Suspect]
     Indication: BIPOLAR DISORDER
     Dosage: 100MG TWENTY TIMES PER DAY
     Route: 048
     Dates: start: 20040421
  2. STRATTERA [Concomitant]
  3. ZYPREXA [Concomitant]
  4. RITALIN [Concomitant]

REACTIONS (2)
  - AGGRESSION [None]
  - HOSTILITY [None]
